FAERS Safety Report 13073453 (Version 2)
Quarter: 2017Q1

REPORT INFORMATION
  Report Type: Report from Study
  Country: JP (occurrence: JP)
  Receive Date: 20161229
  Receipt Date: 20170116
  Transmission Date: 20170428
  Serious: Yes (Death, Hospitalization, Other)
  Sender: FDA-Public Use
  Company Number: JP-DSJP-DSJ-2016-143487AA

PATIENT

DRUGS (12)
  1. FLUITRAN [Concomitant]
     Active Substance: TRICHLORMETHIAZIDE
     Dosage: 2MG/DAY
     Route: 048
     Dates: end: 20160701
  2. FERROMIA [Concomitant]
     Active Substance: FERROUS CITRATE
     Dosage: 0.6G/DAY
     Route: 048
     Dates: start: 20161117, end: 20161218
  3. EDOXABAN [Suspect]
     Active Substance: EDOXABAN TOSYLATE
     Indication: ATRIAL FIBRILLATION
     Dosage: 30 MG, QD
     Route: 048
     Dates: start: 20151118, end: 20160630
  4. FLUITRAN [Concomitant]
     Active Substance: TRICHLORMETHIAZIDE
     Dosage: 2MG/DAY
     Route: 048
     Dates: start: 20161117, end: 20161218
  5. SENNOSIDE                          /00571901/ [Concomitant]
     Active Substance: SENNOSIDES A AND B
     Dosage: 0.3G/DAY
     Route: 048
     Dates: start: 20161117, end: 20161218
  6. EDOXABAN [Suspect]
     Active Substance: EDOXABAN TOSYLATE
     Dosage: 30 MG, QD
     Route: 048
     Dates: start: 20160730, end: 20160804
  7. WARFARIN                           /00014803/ [Concomitant]
     Active Substance: WARFARIN
     Dosage: 1MG/DAY
     Route: 048
     Dates: end: 20151019
  8. FERROUS SODIUM CITRATE [Concomitant]
     Active Substance: SODIUM FERROUS CITRATE
     Dosage: 50MG/DAY
     Route: 048
     Dates: start: 20160426, end: 20160701
  9. FLUITRAN [Concomitant]
     Active Substance: TRICHLORMETHIAZIDE
     Dosage: 2MG/DAY
     Route: 048
     Dates: start: 20160713, end: 20160804
  10. ARICEPT [Concomitant]
     Active Substance: DONEPEZIL HYDROCHLORIDE
     Dosage: 10MG/DAY
     Route: 048
     Dates: start: 20160713, end: 20160804
  11. ARICEPT [Concomitant]
     Active Substance: DONEPEZIL HYDROCHLORIDE
     Dosage: 10MG/DAY
     Route: 048
     Dates: end: 20160701
  12. FERROMIA [Concomitant]
     Active Substance: FERROUS CITRATE
     Dosage: 0.6G/DAY
     Route: 048
     Dates: start: 20160713, end: 20160804

REACTIONS (4)
  - Pharyngeal cancer [Fatal]
  - Haemoptysis [Not Recovered/Not Resolved]
  - Wound sepsis [Recovering/Resolving]
  - Iron deficiency anaemia [Not Recovered/Not Resolved]

NARRATIVE: CASE EVENT DATE: 20160105
